FAERS Safety Report 14598881 (Version 1)
Quarter: 2018Q1

REPORT INFORMATION
  Report Type: Spontaneous
  Country: US (occurrence: US)
  Receive Date: 20180302
  Receipt Date: 20180302
  Transmission Date: 20180509
  Serious: Yes (Other)
  Sender: FDA-Public Use
  Company Number: None

PATIENT
  Age: 62 Year
  Sex: Female

DRUGS (1)
  1. CAPECITABINE 500 MG RISING [Suspect]
     Active Substance: CAPECITABINE
     Indication: BREAST CANCER FEMALE
     Dosage: FREQUENCY - ONE DAILY IN MORNING + ONE DAILY IN THE EVENING X 14 DAYS
     Route: 048
     Dates: start: 20180209

REACTIONS (3)
  - Muscle strain [None]
  - Dysgeusia [None]
  - Dry mouth [None]

NARRATIVE: CASE EVENT DATE: 20180212
